FAERS Safety Report 17964156 (Version 1)
Quarter: 2020Q2

REPORT INFORMATION
  Report Type: Report from Study
  Country: CL (occurrence: CL)
  Receive Date: 20200630
  Receipt Date: 20200630
  Transmission Date: 20200714
  Serious: Yes (Other)
  Sender: FDA-Public Use
  Company Number: NVSC2020CL180835

PATIENT
  Sex: Female

DRUGS (1)
  1. TASIGNA [Suspect]
     Active Substance: NILOTINIB
     Indication: CHRONIC MYELOID LEUKAEMIA
     Dosage: 150 MG (IN THE MORNING AND IN THE AFTERNOON)
     Route: 048
     Dates: start: 201802

REACTIONS (6)
  - Pain [Not Recovered/Not Resolved]
  - Headache [Unknown]
  - Dyskinesia [Unknown]
  - Fall [Not Recovered/Not Resolved]
  - Head injury [Not Recovered/Not Resolved]
  - Inappropriate schedule of product administration [Unknown]
